FAERS Safety Report 6890455-5 (Version None)
Quarter: 2010Q3

REPORT INFORMATION
  Report Type: 
  Country: None (occurrence: None)
  Receive Date: 20100731
  Receipt Date: 20081027
  Transmission Date: 20110219
  Serious: Yes (Other)
  Sender: FDA-Public Use
  Company Number: US-PFIZER INC-2006141433

PATIENT
  Sex: Female
  Weight: 54 kg

DRUGS (1)
  1. LIPITOR [Suspect]
     Indication: BLOOD CHOLESTEROL INCREASED

REACTIONS (4)
  - BRONCHOPNEUMONIA [None]
  - MUSCULAR WEAKNESS [None]
  - ROTATOR CUFF SYNDROME [None]
  - WRONG TECHNIQUE IN DRUG USAGE PROCESS [None]
